FAERS Safety Report 10768751 (Version 5)
Quarter: 2015Q1

REPORT INFORMATION
  Report Type: Spontaneous
  Country: US (occurrence: US)
  Receive Date: 20150206
  Receipt Date: 20150330
  Transmission Date: 20150721
  Serious: No
  Sender: FDA-Public Use
  Company Number: US-PFIZER INC-2015046812

PATIENT
  Age: 68 Year
  Sex: Female
  Weight: 73 kg

DRUGS (10)
  1. FOLIC ACID. [Concomitant]
     Active Substance: FOLIC ACID
     Dosage: 400 ?G, DAILY
  2. LISINOPRIL. [Concomitant]
     Active Substance: LISINOPRIL
     Indication: HYPERTENSION
     Dosage: 10 MG, DAILY
  3. PREDNISONE. [Concomitant]
     Active Substance: PREDNISONE
     Dosage: 5 MG, 2X/DAY
  4. METHOTREXATE [Concomitant]
     Active Substance: METHOTREXATE
     Dosage: 15MG WEEKLY (1 PILL = 2.5MG, DOSE = 6PILLS) ON WEDNESDAY
  5. COENZYME Q10 [Concomitant]
     Active Substance: UBIDECARENONE
     Dosage: 50 MG, DAILY
  6. XELJANZ [Suspect]
     Active Substance: TOFACITINIB CITRATE
     Dosage: UNK
  7. VITAMIN D3 [Concomitant]
     Active Substance: CHOLECALCIFEROL
     Dosage: 2000MG 3 PILLS A DAY
  8. MAGNESIUM [Concomitant]
     Active Substance: MAGNESIUM
     Dosage: 500 MG DAILY
  9. HYDROCODONE W/ACETAMINOPHEN [Concomitant]
     Active Substance: ACETAMINOPHEN\HYDROCODONE BITARTRATE
     Indication: PAIN
     Dosage: UNK, AS NEEDED
  10. ASPIRIN. [Concomitant]
     Active Substance: ASPIRIN
     Indication: FUNCTIONAL GASTROINTESTINAL DISORDER
     Dosage: 81 MG

REACTIONS (8)
  - Fatigue [Unknown]
  - Body height decreased [Unknown]
  - Nausea [Unknown]
  - Hyperhidrosis [Unknown]
  - Muscle twitching [Unknown]
  - Gingivitis [Unknown]
  - Chills [Unknown]
  - Gingival recession [Unknown]

NARRATIVE: CASE EVENT DATE: 20150211
